FAERS Safety Report 9359623 (Version 1)
Quarter: 2013Q2

REPORT INFORMATION
  Report Type: Spontaneous
  Country: US (occurrence: US)
  Receive Date: 20130620
  Receipt Date: 20130620
  Transmission Date: 20140414
  Serious: No
  Sender: FDA-Public Use
  Company Number: US-US-EMD SERONO, INC.-7047983

PATIENT
  Sex: Female

DRUGS (1)
  1. REBIF [Suspect]
     Indication: MULTIPLE SCLEROSIS
     Route: 058
     Dates: start: 20110223

REACTIONS (5)
  - Anxiety [Recovering/Resolving]
  - Urinary tract infection [Unknown]
  - Bacterial infection [Unknown]
  - Myalgia [Unknown]
  - Fatigue [Unknown]
